FAERS Safety Report 8795724 (Version 2)
Quarter: 2012Q4

REPORT INFORMATION
  Report Type: 
  Country: US (occurrence: US)
  Receive Date: 20120920
  Receipt Date: 20121005
  Transmission Date: 20130627
  Serious: No
  Sender: FDA-Public Use
  Company Number: US-PFIZER INC-2012230684

PATIENT
  Age: 70 Year
  Sex: Female
  Weight: 65.76 kg

DRUGS (3)
  1. LYRICA [Suspect]
     Indication: HERPES ZOSTER
     Dosage: 100 mg, three to four times a day
     Route: 048
     Dates: start: 20120905, end: 20120915
  2. SILVER SULFADIAZENE [Suspect]
     Indication: RASH
     Dosage: UNK
     Dates: start: 201209
  3. ZIAC [Concomitant]
     Indication: HYPERTENSION
     Dosage: 5/6.25mg, daily

REACTIONS (9)
  - Rash [Recovered/Resolved]
  - Gait disturbance [Recovered/Resolved]
  - Balance disorder [Recovered/Resolved]
  - Asthenia [Recovering/Resolving]
  - Dyskinesia [Recovered/Resolved]
  - Thinking abnormal [Recovered/Resolved]
  - Somnolence [Recovered/Resolved]
  - Sticky skin [Not Recovered/Not Resolved]
  - Drug ineffective [Unknown]
